FAERS Safety Report 5998226-9 (Version None)
Quarter: 2008Q4

REPORT INFORMATION
  Report Type: 
  Country: None (occurrence: None)
  Receive Date: 20081213
  Receipt Date: 20080701
  Transmission Date: 20090506
  Serious: No
  Sender: FDA-Public Use
  Company Number: US-AMGEN-KDL291774

PATIENT
  Sex: Female

DRUGS (1)
  1. ENBREL [Suspect]
     Indication: RHEUMATOID ARTHRITIS
     Dates: start: 20040101

REACTIONS (5)
  - CYST [None]
  - ORAL CANDIDIASIS [None]
  - RHEUMATOID ARTHRITIS [None]
  - SYNOVITIS [None]
  - TENDON DISORDER [None]
